FAERS Safety Report 16380592 (Version 1)
Quarter: 2019Q2

REPORT INFORMATION
  Report Type: Spontaneous
  Country: US (occurrence: US)
  Receive Date: 20190601
  Receipt Date: 20190601
  Transmission Date: 20190711
  Serious: No
  Sender: FDA-Public Use
  Company Number: US-JNJFOC-20190520946

PATIENT
  Age: 40 Year
  Sex: Female

DRUGS (5)
  1. EMCONCOR [Concomitant]
     Active Substance: BISOPROLOL FUMARATE
     Route: 065
  2. IMUKIN [Suspect]
     Active Substance: INTERFERON GAMMA
     Indication: PRODUCT USED FOR UNKNOWN INDICATION
     Route: 058
  3. THIAMINE. [Concomitant]
     Active Substance: THIAMINE
     Route: 030
  4. IDEBENONE [Concomitant]
     Active Substance: IDEBENONE
     Route: 065
  5. ETRAVIRINE [Suspect]
     Active Substance: ETRAVIRINE
     Indication: FRIEDREICH^S ATAXIA
     Route: 048
     Dates: start: 20190131

REACTIONS (6)
  - Chills [Unknown]
  - Off label use [Unknown]
  - Product use in unapproved indication [Unknown]
  - Influenza [Unknown]
  - Somnolence [Unknown]
  - Ear discomfort [Unknown]

NARRATIVE: CASE EVENT DATE: 2019
